FAERS Safety Report 20628308 (Version 1)
Quarter: 2022Q1

REPORT INFORMATION
  Report Type: Spontaneous
  Country: CN (occurrence: None)
  Receive Date: 20220323
  Receipt Date: 20220323
  Transmission Date: 20220423
  Serious: Yes (Other)
  Sender: FDA-Public Use
  Company Number: CN-ROCHE-3053984

PATIENT
  Age: 73 Year
  Sex: Female

DRUGS (9)
  1. MABTHERA [Suspect]
     Active Substance: RITUXIMAB
     Indication: Diffuse large B-cell lymphoma
     Dosage: FOUR CYCLES, R-CHOP:  01/AUG/2021, 24/AUG/2021, 16/SEP/2021
     Route: 065
     Dates: start: 20210709
  2. MABTHERA [Suspect]
     Active Substance: RITUXIMAB
     Dosage: R-EPOCH:, 09/NOV/2021, 14/DEC/2021, 19/JAN/2022
     Route: 065
     Dates: start: 20211012
  3. CYCLOPHOSPHAMIDE [Concomitant]
     Active Substance: CYCLOPHOSPHAMIDE
     Indication: Diffuse large B-cell lymphoma
     Dosage: 600/900MG; R-CHOP: 09-JUL-2021, 01-AUG-2021, 24-AUG-2021, 16-SEP-2021
  4. CYCLOPHOSPHAMIDE [Concomitant]
     Active Substance: CYCLOPHOSPHAMIDE
     Dosage: R-EPOCH:12-OCT-2021, 09-NOV-2021, 14-DEC-2021, 19-JAN-2022
  5. VINDESINE [Concomitant]
     Active Substance: VINDESINE
     Indication: Diffuse large B-cell lymphoma
     Dosage: R-CHOP: 09-JUL-2021, 01-AUG-2021, 24-AUG-2021, 16-SEP-2021
  6. VINDESINE [Concomitant]
     Active Substance: VINDESINE
     Dosage: R-EPOCH:12-OCT-2021, 09-NOV-2021, 14-DEC-2021, 19-JAN-2022
  7. DOXORUBICIN HYDROCHLORIDE [Concomitant]
     Active Substance: DOXORUBICIN HYDROCHLORIDE
     Indication: Diffuse large B-cell lymphoma
     Dosage: R-CHOP: 09-JUL-2021, 01-AUG-2021, 24-AUG-2021, 16-SEP-2021:?R-EPOCH:12-OCT-2021, 09-NOV-2021, 14-DEC
  8. DEXAMETHASONE [Concomitant]
     Active Substance: DEXAMETHASONE
     Indication: Diffuse large B-cell lymphoma
     Dosage: R-CHOP: 09-JUL-2021, 01-AUG-2021, 24-AUG-2021, 16-SEP-2021;?R-EPOCH:12-OCT-2021, 09-NOV-2021, 14-DEC
  9. ETOPOSIDE [Concomitant]
     Active Substance: ETOPOSIDE
     Indication: Diffuse large B-cell lymphoma
     Dosage: R-EPOCH:12-OCT-2021, 09-NOV-2021, 14-DEC-2021, 19-JAN-2022

REACTIONS (1)
  - Myocardial injury [Unknown]

NARRATIVE: CASE EVENT DATE: 20220101
